FAERS Safety Report 10542157 (Version 2)
Quarter: 2015Q3

REPORT INFORMATION
  Report Type: Spontaneous
  Country: US (occurrence: US)
  Receive Date: 20141024
  Receipt Date: 20150818
  Transmission Date: 20151125
  Serious: No
  Sender: FDA-Public Use
  Company Number: US-GILEAD-2014-0119575

PATIENT
  Age: 84 Year
  Sex: Female

DRUGS (8)
  1. CIPRO                              /00697201/ [Concomitant]
     Active Substance: CIPROFLOXACIN
  2. ATENOLOL. [Concomitant]
     Active Substance: ATENOLOL
  3. ASPIRIN                            /00002701/ [Concomitant]
     Active Substance: ASPIRIN
  4. LETAIRIS [Suspect]
     Active Substance: AMBRISENTAN
     Indication: PULMONARY ARTERIAL HYPERTENSION
     Dosage: 5 MG, QD
     Route: 065
     Dates: start: 20140924
  5. SPIRIVA [Concomitant]
     Active Substance: TIOTROPIUM BROMIDE MONOHYDRATE
  6. IMDUR [Concomitant]
     Active Substance: ISOSORBIDE MONONITRATE
  7. COUMADIN [Concomitant]
     Active Substance: WARFARIN SODIUM
  8. ZOCOR [Concomitant]
     Active Substance: SIMVASTATIN

REACTIONS (5)
  - Weight increased [Unknown]
  - Dyspnoea exertional [Unknown]
  - Oedema peripheral [Not Recovered/Not Resolved]
  - Nasal congestion [Not Recovered/Not Resolved]
  - Secretion discharge [Not Recovered/Not Resolved]

NARRATIVE: CASE EVENT DATE: 201409
